FAERS Safety Report 4316515-0 (Version None)
Quarter: 2004Q1

REPORT INFORMATION
  Report Type: 
  Country: None (occurrence: None)
  Receive Date: 20040312
  Receipt Date: 20030815
  Transmission Date: 20041129
  Serious: Yes (Death)
  Sender: FDA-Public Use
  Company Number: WAES 0308GBR00184

PATIENT
  Sex: Female

DRUGS (10)
  1. ACETAMINOPHEN AND CODEINE PHOSPHATE [Concomitant]
  2. FOSAMAX [Concomitant]
     Route: 048
  3. ASPIRIN [Suspect]
     Indication: HYPERTENSION
  4. BENDROFLUMETHIAZIDE [Concomitant]
  5. DOXAZOSIN MESYLATE [Concomitant]
  6. FLUOXETINE [Concomitant]
  7. NICORANDIL [Concomitant]
  8. PROCHLORPERAZINE MALEATE [Concomitant]
  9. VIOXX [Suspect]
     Indication: LOCALISED OSTEOARTHRITIS
     Route: 048
     Dates: start: 20020924, end: 20030626
  10. VIOXX [Suspect]
     Indication: PAIN
     Route: 048
     Dates: start: 20020924, end: 20030626

REACTIONS (2)
  - GASTROINTESTINAL HAEMORRHAGE [None]
  - HAEMATEMESIS [None]
